FAERS Safety Report 9774368 (Version 1)
Quarter: 2013Q4

REPORT INFORMATION
  Report Type: Spontaneous
  Country: US (occurrence: US)
  Receive Date: 20131220
  Receipt Date: 20131220
  Transmission Date: 20140711
  Serious: Yes (Hospitalization, Other)
  Sender: FDA-Public Use
  Company Number: US-JNJFOC-20131206562

PATIENT
  Age: 28 Year
  Sex: Male
  Weight: 87.09 kg

DRUGS (7)
  1. INVEGA [Suspect]
     Indication: SCHIZOPHRENIA
     Route: 048
     Dates: start: 2011
  2. KLONOPIN [Concomitant]
     Indication: ANXIETY
     Route: 048
  3. NEURONTIN [Concomitant]
     Indication: PERONEAL MUSCULAR ATROPHY
     Route: 048
  4. CENTRUM NOS [Concomitant]
     Indication: PRODUCT USED FOR UNKNOWN INDICATION
     Route: 065
  5. NORMAL SALINE [Concomitant]
     Indication: PRODUCT USED FOR UNKNOWN INDICATION
     Route: 045
  6. ZYRTEC [Concomitant]
     Indication: PRODUCT USED FOR UNKNOWN INDICATION
     Route: 065
  7. BENADRYL [Concomitant]
     Indication: SLEEP DISORDER THERAPY
     Route: 065

REACTIONS (6)
  - Hallucination [Not Recovered/Not Resolved]
  - Anxiety [Unknown]
  - Schizophrenia [Not Recovered/Not Resolved]
  - Constipation [Unknown]
  - Weight increased [Unknown]
  - Head injury [Recovered/Resolved]
